FAERS Safety Report 5194323-9 (Version None)
Quarter: 2006Q4

REPORT INFORMATION
  Report Type: 
  Country: None (occurrence: None)
  Receive Date: 20061228
  Receipt Date: 20061220
  Transmission Date: 20070319
  Serious: Yes (Hospitalization)
  Sender: FDA-Public Use
  Company Number: US-SHR-US-2006-040482

PATIENT
  Sex: Female

DRUGS (1)
  1. MIRENA [Suspect]
     Dosage: 20 A?G/DAY, CONT
     Route: 015
     Dates: start: 20061122, end: 20060101

REACTIONS (5)
  - ANAPHYLACTIC REACTION [None]
  - LARYNGEAL OEDEMA [None]
  - MALAISE [None]
  - RASH GENERALISED [None]
  - URTICARIA [None]
